FAERS Safety Report 8346836-6 (Version None)
Quarter: 2012Q2

REPORT INFORMATION
  Report Type: 
  Country: None (occurrence: None)
  Receive Date: 20120509
  Receipt Date: 20120425
  Transmission Date: 20120825
  Serious: Yes (Death)
  Sender: FDA-Public Use
  Company Number: CH-RANBAXY-2012RR-55977

PATIENT
  Age: 41 Year
  Sex: Female

DRUGS (2)
  1. NAPROXEN [Suspect]
     Indication: PRODUCT USED FOR UNKNOWN INDICATION
     Dosage: UNK
     Route: 065
  2. MYDOCALM [Suspect]
     Indication: PSYCHOSOMATIC DISEASE
     Route: 048

REACTIONS (1)
  - TOXICITY TO VARIOUS AGENTS [None]
